FAERS Safety Report 7071528-3 (Version None)
Quarter: 2010Q4

REPORT INFORMATION
  Report Type: 
  Country: None (occurrence: None)
  Receive Date: 20101029
  Receipt Date: 20090924
  Transmission Date: 20110411
  Serious: No
  Sender: FDA-Public Use
  Company Number: A0807858A

PATIENT
  Age: 77 Year
  Sex: Female

DRUGS (14)
  1. ADVAIR DISKUS 100/50 [Suspect]
     Indication: EMPHYSEMA
     Dosage: 1PUFF PER DAY
     Route: 055
     Dates: start: 20090301
  2. ASPIRIN [Concomitant]
  3. CENTRUM SILVER [Concomitant]
  4. LIBRIUM [Concomitant]
  5. UNIPHYL [Concomitant]
  6. LISINOPRIL [Concomitant]
  7. ZOCOR [Concomitant]
  8. BUMETANIDE [Concomitant]
  9. POTASSIUM CHLORIDE [Concomitant]
  10. HYDROCODONE [Concomitant]
  11. PRILOSEC [Concomitant]
  12. MELOXICAM [Concomitant]
  13. ALBUTEROL [Concomitant]
  14. COMBIVENT [Concomitant]

REACTIONS (2)
  - ASTHENIA [None]
  - HYPERSOMNIA [None]
